FAERS Safety Report 5237795-3 (Version None)
Quarter: 2007Q1

REPORT INFORMATION
  Report Type: 
  Country: None (occurrence: None)
  Receive Date: 20070214
  Receipt Date: 20070206
  Transmission Date: 20070707
  Serious: Yes (Death, Congenital Anomaly)
  Sender: FDA-Public Use
  Company Number: 2006SE06617

PATIENT
  Sex: Male
  Weight: 2 kg

DRUGS (1)
  1. BLOPRESS [Suspect]
     Indication: HYPERTENSION
     Route: 064

REACTIONS (6)
  - CARDIAC FAILURE [None]
  - HYPERAEMIA [None]
  - OLIGOHYDRAMNIOS [None]
  - POTTER'S SYNDROME [None]
  - RENAL APLASIA [None]
  - UMBILICAL CORD PROLAPSE [None]
